FAERS Safety Report 20422991 (Version 1)
Quarter: 2022Q1

REPORT INFORMATION
  Report Type: Spontaneous
  Country: DE (occurrence: DE)
  Receive Date: 20220203
  Receipt Date: 20220203
  Transmission Date: 20220423
  Serious: Yes (Hospitalization)
  Sender: FDA-Public Use
  Company Number: DE-MYLANLABS-2022M1010284

PATIENT
  Age: 84 Year
  Sex: Male

DRUGS (4)
  1. METHOTREXATE [Suspect]
     Active Substance: METHOTREXATE
     Indication: Rheumatoid arthritis
     Dosage: 10 MILLIGRAM, QW
     Route: 058
  2. PREDNISOLONE [Suspect]
     Active Substance: PREDNISOLONE
     Indication: Rheumatoid arthritis
     Dosage: 10 MILLIGRAM, QD
     Route: 065
  3. AVELUMAB [Concomitant]
     Active Substance: AVELUMAB
     Indication: Neuroendocrine carcinoma of the skin
     Dosage: 10 MILLIGRAM/KILOGRAM, BIWEEKLY
     Route: 065
  4. AVELUMAB [Concomitant]
     Active Substance: AVELUMAB
     Indication: Metastatic neoplasm

REACTIONS (2)
  - Neuroendocrine carcinoma of the skin [Recovered/Resolved]
  - Metastatic neoplasm [Recovered/Resolved]
